FAERS Safety Report 23753296 (Version 2)
Quarter: 2025Q1

REPORT INFORMATION
  Report Type: Report from Study
  Country: DE (occurrence: DE)
  Receive Date: 20240417
  Receipt Date: 20250324
  Transmission Date: 20250408
  Serious: Yes (Hospitalization, Other)
  Sender: SANDOZ
  Company Number: DE-EMA-DD-20240410-7482715-143743

PATIENT
  Age: 27 Year
  Sex: Female

DRUGS (1)
  1. FILGRASTIM [Suspect]
     Active Substance: FILGRASTIM
     Indication: Stem cell donor
     Route: 042
     Dates: start: 20130808, end: 20130812

REACTIONS (8)
  - Goitre [Recovered/Resolved with Sequelae]
  - Autoimmune thyroiditis [Not Recovered/Not Resolved]
  - Autoimmune thyroiditis [Not Recovered/Not Resolved]
  - Blood potassium decreased [Recovered/Resolved]
  - Intervertebral disc protrusion [Recovered/Resolved with Sequelae]
  - Dermal cyst [Recovered/Resolved]
  - Haematoma [Recovered/Resolved]
  - Bone pain [Recovered/Resolved]

NARRATIVE: CASE EVENT DATE: 20130808
